FAERS Safety Report 5260162-3 (Version None)
Quarter: 2007Q1

REPORT INFORMATION
  Report Type: 
  Country: None (occurrence: None)
  Receive Date: 20070309
  Receipt Date: 20060412
  Transmission Date: 20070707
  Serious: No
  Sender: FDA-Public Use
  Company Number: US-GLAXOSMITHKLINE-A0601340A

PATIENT
  Age: 52 Year
  Sex: Female

DRUGS (1)
  1. TARGET ORIGINAL 2MG [Suspect]
     Dates: start: 20060406, end: 20060407

REACTIONS (1)
  - ABDOMINAL PAIN UPPER [None]
